FAERS Safety Report 9379540 (Version 1)
Quarter: 2013Q3

REPORT INFORMATION
  Report Type: Spontaneous
  Country: US (occurrence: US)
  Receive Date: 20130702
  Receipt Date: 20130702
  Transmission Date: 20140515
  Serious: Yes (Other)
  Sender: FDA-Public Use
  Company Number: US-BAYER-2013-080711

PATIENT
  Age: 36 Year
  Sex: Female

DRUGS (11)
  1. YASMIN [Suspect]
  2. OCELLA [Suspect]
  3. IMITREX [Concomitant]
  4. FROVA [Concomitant]
  5. NEXIUM [Concomitant]
  6. PREVACID [Concomitant]
  7. PRILOSEC [Concomitant]
  8. ALLEGRA [Concomitant]
  9. MUCINEX [Concomitant]
  10. LORTAB [Concomitant]
  11. KLONOPIN [Concomitant]

REACTIONS (1)
  - Deep vein thrombosis [Recovered/Resolved]
